FAERS Safety Report 7932408-1 (Version None)
Quarter: 2011Q4

REPORT INFORMATION
  Report Type: 
  Country: None (occurrence: None)
  Receive Date: 20111122
  Receipt Date: 20111111
  Transmission Date: 20120403
  Serious: Yes (Hospitalization)
  Sender: FDA-Public Use
  Company Number: DE-BIOGENIDEC-2011BI043643

PATIENT
  Age: 39 Year
  Sex: Male

DRUGS (2)
  1. CARBAMAZEPINE [Concomitant]
     Indication: EPILEPSY
  2. TYSABRI [Suspect]
     Indication: MULTIPLE SCLEROSIS
     Route: 042
     Dates: start: 20080425

REACTIONS (1)
  - GRAND MAL CONVULSION [None]
